FAERS Safety Report 13994270 (Version 1)
Quarter: 2017Q3

REPORT INFORMATION
  Report Type: Spontaneous
  Country: RU (occurrence: RU)
  Receive Date: 20170920
  Receipt Date: 20170920
  Transmission Date: 20171128
  Serious: Yes (Other)
  Sender: FDA-Public Use
  Company Number: RU-ABBVIE-17P-251-2108162-00

PATIENT
  Age: 21 Year
  Sex: Female

DRUGS (1)
  1. DEPAKINE CHRONO [Suspect]
     Active Substance: VALPROATE SODIUM
     Indication: PRODUCT USED FOR UNKNOWN INDICATION
     Route: 048
     Dates: start: 20150310, end: 20151212

REACTIONS (2)
  - Systemic lupus erythematosus [Recovering/Resolving]
  - Ovarian disorder [Recovering/Resolving]

NARRATIVE: CASE EVENT DATE: 20151010
